FAERS Safety Report 6870907-4 (Version None)
Quarter: 2010Q3

REPORT INFORMATION
  Report Type: 
  Country: None (occurrence: None)
  Receive Date: 20100723
  Receipt Date: 20100719
  Transmission Date: 20110219
  Serious: Yes (Death)
  Sender: FDA-Public Use
  Company Number: CA-ASTRAZENECA-2010SE33671

PATIENT
  Age: 42 Year
  Sex: Male

DRUGS (9)
  1. SYMBICORT [Suspect]
     Route: 055
  2. CLOZARIL [Suspect]
     Route: 048
  3. SEROQUEL [Concomitant]
     Route: 048
  4. CRESTOR [Concomitant]
     Route: 048
  5. CLONAZEPAM [Concomitant]
     Route: 065
  6. COGENTIN [Concomitant]
     Route: 065
  7. OLANZAPINE [Concomitant]
     Route: 065
  8. VENTOLIN [Concomitant]
     Route: 065
  9. ZANTAC [Concomitant]
     Route: 065

REACTIONS (2)
  - MYOCARDIAL INFARCTION [None]
  - SUDDEN DEATH [None]
